FAERS Safety Report 8265861-7 (Version None)
Quarter: 2012Q2

REPORT INFORMATION
  Report Type: 
  Country: None (occurrence: None)
  Receive Date: 20120406
  Receipt Date: 20120329
  Transmission Date: 20120825
  Serious: Yes (Death)
  Sender: FDA-Public Use
  Company Number: US-GLAXOSMITHKLINE-A0972416A

PATIENT
  Age: 54 Year
  Sex: Male
  Weight: 88.6 kg

DRUGS (1)
  1. TYKERB [Suspect]
     Indication: NEOPLASM MALIGNANT
     Dosage: 1000MG PER DAY
     Route: 048
     Dates: start: 20120208

REACTIONS (1)
  - DEATH [None]
